FAERS Safety Report 5647178-X (Version None)
Quarter: 2008Q1

REPORT INFORMATION
  Report Type: 
  Country: None (occurrence: None)
  Receive Date: 20080303
  Receipt Date: 20080219
  Transmission Date: 20080703
  Serious: Yes (Hospitalization)
  Sender: FDA-Public Use
  Company Number: JP-BAYER-200810345BYL

PATIENT
  Age: 68 Year
  Sex: Female

DRUGS (5)
  1. ADALAT [Suspect]
     Indication: HYPERTENSION
     Dosage: TOTAL DAILY DOSE: 20 MG  UNIT DOSE: 20 MG
     Route: 048
     Dates: start: 20080101, end: 20080208
  2. NORVASC [Concomitant]
     Route: 048
  3. INSULIN [Concomitant]
     Route: 042
  4. DIART [Concomitant]
     Route: 048
  5. ALDACTONE [Concomitant]
     Route: 048

REACTIONS (1)
  - RENAL FAILURE ACUTE [None]
